FAERS Safety Report 15942861 (Version 2)
Quarter: 2019Q2

REPORT INFORMATION
  Report Type: Spontaneous
  Country: US (occurrence: US)
  Receive Date: 20190209
  Receipt Date: 20190412
  Transmission Date: 20190711
  Serious: No
  Sender: FDA-Public Use
  Company Number: US-009507513-1902USA001118

PATIENT
  Age: 34 Year
  Sex: Male

DRUGS (3)
  1. BELSOMRA [Suspect]
     Active Substance: SUVOREXANT
     Dosage: 20 MG, ROUTE REPORTED AS ^SWALLOW^
     Route: 048
     Dates: start: 201901, end: 2019
  2. TYLENOL WITH CODEINE #4 [Concomitant]
     Dosage: OCCASIONALLY
  3. BELSOMRA [Suspect]
     Active Substance: SUVOREXANT
     Indication: INSOMNIA
     Dosage: 1 TABLET BY MOUTH, ROUTE REPORTED AS ^SWALLOW^
     Route: 048
     Dates: start: 201901, end: 201901

REACTIONS (2)
  - Sleep paralysis [Recovered/Resolved]
  - Drug ineffective [Recovered/Resolved]

NARRATIVE: CASE EVENT DATE: 201901
